FAERS Safety Report 9918486 (Version 1)
Quarter: 2014Q1

REPORT INFORMATION
  Report Type: Spontaneous
  Country: US (occurrence: US)
  Receive Date: 20140224
  Receipt Date: 20140224
  Transmission Date: 20141002
  Serious: No
  Sender: FDA-Public Use
  Company Number: US-BIOGENIDEC-2014BI014345

PATIENT
  Sex: Female

DRUGS (1)
  1. TECFIDERA [Suspect]
     Indication: MULTIPLE SCLEROSIS
     Dates: start: 2014

REACTIONS (6)
  - Pneumonia [Unknown]
  - Bronchitis [Unknown]
  - Fatigue [Unknown]
  - Pruritus [Unknown]
  - Feeling hot [Unknown]
  - Erythema [Unknown]
